FAERS Safety Report 8539886-8 (Version None)
Quarter: 2012Q3

REPORT INFORMATION
  Report Type: 
  Country: None (occurrence: None)
  Receive Date: 20120726
  Receipt Date: 20120723
  Transmission Date: 20120928
  Serious: Yes (Other)
  Sender: FDA-Public Use
  Company Number: JP-B.I. PHARMACEUTICALS,INC./RIDGEFIELD-2012-EU-03339GD

PATIENT
  Age: 74 Year
  Sex: Male

DRUGS (7)
  1. PRAMIPEXOLE DIHYCHLORIDE [Suspect]
     Indication: PARKINSON'S DISEASE
     Dates: start: 20071115
  2. DROXIDOPA [Suspect]
     Indication: PARKINSON'S DISEASE
     Dates: start: 20071115
  3. LEVODOPA [Suspect]
     Indication: PARKINSON'S DISEASE
     Dates: start: 20071115
  4. AMANTADINE HCL [Suspect]
     Indication: PARKINSON'S DISEASE
     Dates: start: 20071115
  5. SOLIFENACIN SUCCINATE [Suspect]
     Indication: HYPERTONIC BLADDER
     Dates: start: 20101019
  6. ZONISAMIDE [Suspect]
     Indication: PARKINSON'S DISEASE
     Dates: start: 20101209
  7. TAMSULOSIN HCL [Suspect]
     Indication: BENIGN PROSTATIC HYPERPLASIA
     Dates: start: 20101019

REACTIONS (3)
  - HEPATITIS B [None]
  - HYPERTONIC BLADDER [None]
  - BENIGN PROSTATIC HYPERPLASIA [None]
